FAERS Safety Report 24561622 (Version 1)
Quarter: 2024Q4

REPORT INFORMATION
  Report Type: Spontaneous
  Country: JP (occurrence: None)
  Receive Date: 20241029
  Receipt Date: 20241029
  Transmission Date: 20250115
  Serious: Yes (Life-Threatening, Hospitalization, Other)
  Sender: ALEXION PHARMACEUTICALS
  Company Number: JP-ASTRAZENECA-240108497_013120_P_1

PATIENT
  Age: 82 Year
  Weight: 46 kg

DRUGS (16)
  1. DURVALUMAB [Suspect]
     Active Substance: DURVALUMAB
     Indication: Hepatocellular carcinoma
  2. TREMELIMUMAB [Suspect]
     Active Substance: TREMELIMUMAB
     Indication: Hepatocellular carcinoma
  3. CALCIUM POLYSTYRENE SULFONATE [Concomitant]
     Active Substance: CALCIUM POLYSTYRENE SULFONATE
     Dosage: DOSE UNKNOWN
  4. AMINO ACIDS, SOURCE UNSPECIFIED [Concomitant]
     Active Substance: AMINO ACIDS, SOURCE UNSPECIFIED
     Dosage: DOSE UNKNOWN
  5. EPINASTINE HYDROCHLORIDE [Concomitant]
     Active Substance: EPINASTINE HYDROCHLORIDE
     Dosage: DOSE UNKNOWN
     Route: 065
  6. BISOPROLOL [Concomitant]
     Active Substance: BISOPROLOL\BISOPROLOL FUMARATE
     Dosage: DOSE UNKNOWN
     Route: 065
  7. TOLVAPTAN [Concomitant]
     Active Substance: TOLVAPTAN
     Dosage: DOSE UNKNOWN
     Route: 065
  8. ASPIRIN\VONOPRAZAN FUMARATE [Concomitant]
     Active Substance: ASPIRIN\VONOPRAZAN FUMARATE
     Dosage: DOSE UNKNOWN
  9. JARDIANCE [Concomitant]
     Active Substance: EMPAGLIFLOZIN
     Dosage: DOSE UNKNOWN
  10. FUROSEMIDE [Concomitant]
     Active Substance: FUROSEMIDE
     Dosage: DOSE UNKNOWN
     Route: 065
  11. PITAVASTATIN CALCIUM [Concomitant]
     Active Substance: PITAVASTATIN CALCIUM
     Dosage: DOSE UNKNOWN
     Route: 065
  12. NICORANDIL [Concomitant]
     Active Substance: NICORANDIL
     Dosage: DOSE UNKNOWN
     Route: 065
  13. MAGNESIUM OXIDE [Concomitant]
     Active Substance: MAGNESIUM OXIDE
     Dosage: DOSE UNKNOWN
     Route: 065
  14. ACETAMINOPHEN [Concomitant]
     Active Substance: ACETAMINOPHEN
     Dosage: DOSE UNKNOWN
     Route: 065
  15. LEVOTHYROXINE [Concomitant]
     Active Substance: LEVOTHYROXINE
     Dosage: DOSE UNKNOWN
     Route: 065
  16. MIRIPLA [Concomitant]
     Dosage: DOSE UNKNOWN

REACTIONS (1)
  - Immune-mediated hepatic disorder [Recovering/Resolving]
